FAERS Safety Report 8006762-9 (Version None)
Quarter: 2011Q4

REPORT INFORMATION
  Report Type: 
  Country: None (occurrence: None)
  Receive Date: 20111227
  Receipt Date: 20111219
  Transmission Date: 20120403
  Serious: Yes (Other)
  Sender: FDA-Public Use
  Company Number: JP-JNJFOC-20111207683

PATIENT
  Age: 50 Year
  Sex: Female

DRUGS (3)
  1. MS CONTIN [Concomitant]
     Indication: PAIN
     Route: 048
     Dates: start: 20111212
  2. DEXTROMETHORPHAN HYDROBROMIDE [Concomitant]
     Indication: PAIN
     Route: 048
     Dates: start: 20111220
  3. FENTANYL-100 [Suspect]
     Indication: PAIN
     Route: 062
     Dates: end: 20111213

REACTIONS (4)
  - DEPRESSED LEVEL OF CONSCIOUSNESS [None]
  - WITHDRAWAL SYNDROME [None]
  - OVERDOSE [None]
  - FEELING COLD [None]
